FAERS Safety Report 6491896-0 (Version None)
Quarter: 2009Q4

REPORT INFORMATION
  Report Type: 
  Country: None (occurrence: None)
  Receive Date: 20091125
  Receipt Date: 20090804
  Transmission Date: 20100525
  Serious: Yes (Hospitalization)
  Sender: FDA-Public Use
  Company Number: 2009BH012404

PATIENT
  Age: 60 Year
  Sex: Male

DRUGS (3)
  1. DIANEAL [Suspect]
     Indication: PERITONEAL DIALYSIS
     Dosage: 20 L ; EVERY DAY ; IP
     Route: 033
     Dates: start: 20060418, end: 20090806
  2. DIANEAL [Suspect]
     Indication: PERITONEAL DIALYSIS
     Dosage: ; PRN ; IP
     Route: 033
     Dates: start: 20060418, end: 20090806
  3. EXTRANEAL [Suspect]
     Indication: PERITONEAL DIALYSIS
     Dosage: 2.5 L ; EVERY DAY ; IP
     Route: 033
     Dates: start: 20060418, end: 20090806

REACTIONS (4)
  - HYPOTENSION [None]
  - MALAISE [None]
  - MEDICAL DEVICE COMPLICATION [None]
  - PERITONITIS BACTERIAL [None]
